FAERS Safety Report 21352326 (Version 2)
Quarter: 2022Q4

REPORT INFORMATION
  Report Type: Spontaneous
  Country: CM (occurrence: CM)
  Receive Date: 20220920
  Receipt Date: 20221004
  Transmission Date: 20230113
  Serious: Yes (Disabling)
  Sender: FDA-Public Use
  Company Number: CM-NOVARTISPH-NVSC2022CM210772

PATIENT
  Age: 43 Year
  Sex: Male
  Weight: 107 kg

DRUGS (1)
  1. TRAVATAN [Suspect]
     Active Substance: TRAVOPROST
     Indication: Open angle glaucoma
     Dosage: 1 DRP, QD
     Route: 065
     Dates: start: 20220912, end: 20220915

REACTIONS (4)
  - Conjunctival hyperaemia [Recovered/Resolved]
  - Eye pain [Recovered/Resolved]
  - Ocular hyperaemia [Recovered/Resolved]
  - Vision blurred [Recovered/Resolved]

NARRATIVE: CASE EVENT DATE: 20220912
